FAERS Safety Report 9789599 (Version 1)
Quarter: 2013Q4

REPORT INFORMATION
  Report Type: Spontaneous
  Country: GB (occurrence: GB)
  Receive Date: 20131231
  Receipt Date: 20131231
  Transmission Date: 20140711
  Serious: Yes (Hospitalization)
  Sender: FDA-Public Use
  Company Number: GB-ASTRAZENECA-2013SE93288

PATIENT
  Age: 38 Year
  Sex: Male
  Weight: 100 kg

DRUGS (10)
  1. FELODIPINE [Suspect]
     Indication: DIASTOLIC HYPERTENSION
     Route: 048
     Dates: start: 20131110, end: 20131210
  2. BISACODYL [Concomitant]
  3. CODEINE HYDROCHLORIDE [Concomitant]
  4. DOCUSATE [Concomitant]
  5. LACTULOSE SOLUTION [Concomitant]
  6. METFORMIN [Concomitant]
  7. OMEPRAZOLE [Concomitant]
  8. PARACETAMOL [Concomitant]
  9. RAMIPRIL [Concomitant]
  10. SENNA [Concomitant]

REACTIONS (2)
  - Constipation [Unknown]
  - Faecaloma [Recovered/Resolved]
